FAERS Safety Report 7358843-0 (Version None)
Quarter: 2011Q1

REPORT INFORMATION
  Report Type: 
  Country: None (occurrence: None)
  Receive Date: 20110317
  Receipt Date: 20110310
  Transmission Date: 20110831
  Serious: Yes (Hospitalization)
  Sender: FDA-Public Use
  Company Number: B0700559A

PATIENT
  Age: 50 Year
  Sex: Male
  Weight: 103.4 kg

DRUGS (7)
  1. LOVASTATIN [Concomitant]
  2. AVANDIA [Suspect]
     Indication: DIABETES MELLITUS
     Dosage: 4MG PER DAY
     Route: 048
     Dates: start: 20050101, end: 20070301
  3. LIPITOR [Concomitant]
  4. MEVACOR [Concomitant]
  5. LISINOPRIL [Concomitant]
  6. NEXIUM [Concomitant]
  7. HUMULIN 70/30 [Concomitant]

REACTIONS (1)
  - MYOCARDIAL INFARCTION [None]
